FAERS Safety Report 9292941 (Version 1)
Quarter: 2013Q2

REPORT INFORMATION
  Report Type: Spontaneous
  Country: US (occurrence: US)
  Receive Date: 20130516
  Receipt Date: 20130516
  Transmission Date: 20140414
  Serious: Yes (Hospitalization, Other)
  Sender: FDA-Public Use
  Company Number: US-ASTRAZENECA-2012SE45254

PATIENT
  Age: 84 Year
  Sex: Female

DRUGS (4)
  1. TOPROL XL [Suspect]
     Indication: HEART RATE INCREASED
     Dosage: TWO TABLETS
     Route: 048
  2. TOPROL XL [Suspect]
     Indication: HEART RATE INCREASED
     Dosage: ONE TABLET
     Route: 048
  3. TOPROL XL [Suspect]
     Indication: HEART RATE INCREASED
     Route: 048
  4. CRESTOR [Suspect]
     Indication: BLOOD CHOLESTEROL ABNORMAL
     Route: 048

REACTIONS (4)
  - Stress [Unknown]
  - Heart rate increased [Unknown]
  - Drug ineffective [Unknown]
  - Intentional drug misuse [Unknown]
